FAERS Safety Report 15451212 (Version 1)
Quarter: 2018Q4

REPORT INFORMATION
  Report Type: Spontaneous
  Country: AU (occurrence: AU)
  Receive Date: 20181001
  Receipt Date: 20181001
  Transmission Date: 20190204
  Serious: Yes (Other)
  Sender: FDA-Public Use
  Company Number: AU-ASTELLAS-2018US042187

PATIENT
  Sex: Male

DRUGS (2)
  1. XTANDI [Suspect]
     Active Substance: ENZALUTAMIDE
     Indication: PROSTATE CANCER
     Route: 065
     Dates: start: 201801
  2. METFORMIN [Concomitant]
     Active Substance: METFORMIN HYDROCHLORIDE
     Indication: TYPE 2 DIABETES MELLITUS
     Dosage: UNK UNK, TWICE DAILY
     Route: 065

REACTIONS (8)
  - Balance disorder [Unknown]
  - Memory impairment [Unknown]
  - Decreased appetite [Unknown]
  - Hypoaesthesia teeth [Unknown]
  - Weight decreased [Unknown]
  - Malaise [Unknown]
  - Malignant neoplasm progression [Unknown]
  - Asthenia [Unknown]
